FAERS Safety Report 19610337 (Version 1)
Quarter: 2021Q3

REPORT INFORMATION
  Report Type: Spontaneous
  Country: DE (occurrence: DE)
  Receive Date: 20210726
  Receipt Date: 20210726
  Transmission Date: 20211014
  Serious: Yes (Hospitalization, Other)
  Sender: FDA-Public Use
  Company Number: DE-MYLANLABS-2021M1044548

PATIENT
  Age: 13 Year
  Sex: Female
  Weight: 50 kg

DRUGS (1)
  1. IBUPROFEN. [Suspect]
     Active Substance: IBUPROFEN
     Indication: PRODUCT USED FOR UNKNOWN INDICATION
     Dosage: DAILY DOSE: 7200 MG MILLGRAM(S) EVERY DAYS 18 SEPARATED DOSES
     Route: 048
     Dates: start: 20200405, end: 20200405

REACTIONS (3)
  - Toxicity to various agents [Unknown]
  - Suicidal ideation [Unknown]
  - Intentional overdose [Unknown]

NARRATIVE: CASE EVENT DATE: 20200405
